FAERS Safety Report 23843043 (Version 7)
Quarter: 2024Q3

REPORT INFORMATION
  Report Type: Spontaneous
  Country: US (occurrence: US)
  Receive Date: 20240510
  Receipt Date: 20240724
  Transmission Date: 20241017
  Serious: Yes (Hospitalization)
  Sender: MYLAN
  Company Number: US-MYLANLABS-2024M1041596

PATIENT
  Age: 22 Year
  Sex: Female
  Weight: 61.69 kg

DRUGS (7)
  1. EFFEXOR [Suspect]
     Active Substance: VENLAFAXINE HYDROCHLORIDE
     Indication: Anxiety
     Dosage: 225 MILLIGRAM, QD (150 MG CAPSULE + 75 MG CAPSULE EVERYDAY MORNING ONCE DAILY)
     Route: 048
     Dates: start: 2022
  2. EFFEXOR [Suspect]
     Active Substance: VENLAFAXINE HYDROCHLORIDE
     Indication: Depression
     Dosage: 250 MILLIGRAM, QD
     Route: 048
     Dates: start: 2022
  3. EFFEXOR [Suspect]
     Active Substance: VENLAFAXINE HYDROCHLORIDE
     Indication: Depression
     Dosage: 225 MILLIGRAM, QD (150 MG CAPSULE + 75 MG CAPSULE EVERYDAY MORNING ONCE DAILY)
     Route: 048
     Dates: start: 2022
  4. EFFEXOR [Suspect]
     Active Substance: VENLAFAXINE HYDROCHLORIDE
     Indication: Anxiety
  5. DEPO-PROVERA [Concomitant]
     Active Substance: MEDROXYPROGESTERONE ACETATE
     Indication: Dysmenorrhoea
     Dosage: 150 MILLIGRAM PER MILLILITRE, Q2W
     Route: 030
     Dates: end: 202404
  6. DEPO-PROVERA [Concomitant]
     Active Substance: MEDROXYPROGESTERONE ACETATE
     Indication: Heavy menstrual bleeding
     Dosage: 150 MILLILITER (ONCE EVERY THREE MONTH)
     Route: 030
     Dates: start: 20230823, end: 20240208
  7. LAMICTAL [Concomitant]
     Active Substance: LAMOTRIGINE
     Indication: Affective disorder
     Dosage: 100 MILLIGRAM, QD
     Route: 048

REACTIONS (6)
  - Migraine [Not Recovered/Not Resolved]
  - Intermenstrual bleeding [Unknown]
  - Scarlet fever [Unknown]
  - Musculoskeletal stiffness [Unknown]
  - Ear discomfort [Unknown]
  - Musculoskeletal discomfort [Unknown]

NARRATIVE: CASE EVENT DATE: 20230601
